FAERS Safety Report 14776489 (Version 3)
Quarter: 2019Q1

REPORT INFORMATION
  Report Type: Spontaneous
  Country: ZA (occurrence: ZA)
  Receive Date: 20180418
  Receipt Date: 20190306
  Transmission Date: 20190417
  Serious: Yes (Disabling)
  Sender: FDA-Public Use
  Company Number: ZA-SA-2018SA104997

PATIENT
  Sex: Male

DRUGS (1)
  1. MYOZYME [Suspect]
     Active Substance: ALGLUCOSIDASE ALFA
     Dosage: UNK UNK,UNK
     Route: 041

REACTIONS (3)
  - Mobility decreased [Unknown]
  - Myalgia [Unknown]
  - Bedridden [Unknown]

NARRATIVE: CASE EVENT DATE: 201803
